FAERS Safety Report 5137082-8 (Version None)
Quarter: 2006Q4

REPORT INFORMATION
  Report Type: 
  Country: None (occurrence: None)
  Receive Date: 20061030
  Receipt Date: 20061012
  Transmission Date: 20070319
  Serious: Yes (Death, Other)
  Sender: FDA-Public Use
  Company Number: PHHO2006MX16974

PATIENT
  Age: 60 Year
  Sex: Male

DRUGS (1)
  1. ZELMAC / HTF 919A [Suspect]
     Indication: CONSTIPATION
     Dosage: 6 MG, UNK
     Route: 048
     Dates: start: 20050901

REACTIONS (9)
  - BLADDER OPERATION [None]
  - DIARRHOEA [None]
  - DYSURIA [None]
  - MALIGNANT NEOPLASM PROGRESSION [None]
  - METASTASES TO BONE [None]
  - METASTASES TO KIDNEY [None]
  - ORCHIDECTOMY [None]
  - PROSTATE CANCER [None]
  - RENAL FAILURE [None]
